FAERS Safety Report 8492039-4 (Version None)
Quarter: 2012Q3

REPORT INFORMATION
  Report Type: 
  Country: None (occurrence: None)
  Receive Date: 20120706
  Receipt Date: 20120703
  Transmission Date: 20120928
  Serious: Yes (Life-Threatening, Hospitalization)
  Sender: FDA-Public Use
  Company Number: FR-B.I. PHARMACEUTICALS,INC./RIDGEFIELD-2011-FF-01106FF

PATIENT
  Sex: Female
  Weight: 80 kg

DRUGS (4)
  1. NICARDIPINE HCL [Concomitant]
  2. DIAMICRON [Concomitant]
  3. AMIODARONE HCL [Concomitant]
  4. PRADAXA [Suspect]
     Indication: KNEE ARTHROPLASTY
     Dosage: 150 MG
     Route: 048
     Dates: start: 20100331, end: 20100505

REACTIONS (3)
  - WOUND SECRETION [None]
  - INFLAMMATION OF WOUND [None]
  - HAEMATOMA [None]
